FAERS Safety Report 22688593 (Version 13)
Quarter: 2024Q1

REPORT INFORMATION
  Report Type: Spontaneous
  Country: US (occurrence: US)
  Receive Date: 20230710
  Receipt Date: 20240327
  Transmission Date: 20240409
  Serious: Yes (Other)
  Sender: FDA-Public Use
  Company Number: US-BRISTOL-MYERS SQUIBB COMPANY-2023-096795

PATIENT
  Age: 74 Year
  Sex: Female
  Weight: 80.29 kg

DRUGS (4)
  1. POMALYST [Suspect]
     Active Substance: POMALIDOMIDE
     Indication: Plasma cell myeloma
     Dosage: FREQUENCY: 21D ON 7D OFF
     Route: 048
  2. POMALYST [Suspect]
     Active Substance: POMALIDOMIDE
     Dosage: FREQUENCY: 3WKS ON,1OFF
     Route: 048
     Dates: start: 20230601
  3. POMALYST [Suspect]
     Active Substance: POMALIDOMIDE
     Dosage: 3WKSON, 1WKOFF
     Route: 048
  4. POMALYST [Suspect]
     Active Substance: POMALIDOMIDE
     Dosage: FREQUENCY: DAILY FOR 21 DAYS/3W, 1W OFF
     Route: 048
     Dates: start: 20230630

REACTIONS (21)
  - Enuresis [Unknown]
  - Nocturia [Unknown]
  - Palpitations [Unknown]
  - Headache [Unknown]
  - Diarrhoea [Unknown]
  - Constipation [Unknown]
  - Faeces discoloured [Unknown]
  - Renal disorder [Unknown]
  - Cellulitis [Unknown]
  - Urinary incontinence [Not Recovered/Not Resolved]
  - Myalgia [Unknown]
  - Arthralgia [Unknown]
  - Bone pain [Unknown]
  - Muscle spasms [Unknown]
  - Abdominal pain upper [Unknown]
  - Limb discomfort [Unknown]
  - Neuropathy peripheral [Not Recovered/Not Resolved]
  - Muscle rigidity [Not Recovered/Not Resolved]
  - Hypertension [Not Recovered/Not Resolved]
  - Oedema peripheral [Not Recovered/Not Resolved]
  - Thrombosis [Recovering/Resolving]
